FAERS Safety Report 25973072 (Version 1)
Quarter: 2025Q4

REPORT INFORMATION
  Report Type: Spontaneous
  Country: EU (occurrence: EU)
  Receive Date: 20251029
  Receipt Date: 20251029
  Transmission Date: 20260119
  Serious: Yes (Other)
  Sender: ALEXION PHARMACEUTICALS
  Company Number: None

PATIENT
  Age: 61 Year
  Sex: Male
  Weight: 95 kg

DRUGS (1)
  1. ROSUVASTATIN [Suspect]
     Active Substance: ROSUVASTATIN
     Indication: Product used for unknown indication
     Dosage: UNK
     Dates: start: 20241212, end: 20250404

REACTIONS (2)
  - Libido decreased [Recovered/Resolved with Sequelae]
  - Erectile dysfunction [Unknown]

NARRATIVE: CASE EVENT DATE: 20241212
